FAERS Safety Report 17616878 (Version 22)
Quarter: 2025Q1

REPORT INFORMATION
  Report Type: Report from Study
  Country: US (occurrence: US)
  Receive Date: 20200402
  Receipt Date: 20250331
  Transmission Date: 20250409
  Serious: Yes (Other)
  Sender: TAKEDA
  Company Number: US-SHIRE-US202008931

PATIENT
  Sex: Female
  Weight: 59 kg

DRUGS (33)
  1. HUMAN IMMUNOGLOBULIN G [Suspect]
     Active Substance: HUMAN IMMUNOGLOBULIN G
     Indication: Immunodeficiency common variable
     Dosage: 5 GRAM, 1/WEEK
     Dates: start: 20111121
  2. HUMAN IMMUNOGLOBULIN G [Suspect]
     Active Substance: HUMAN IMMUNOGLOBULIN G
     Indication: Combined immunodeficiency
     Dosage: 5 GRAM, 1/WEEK
  3. EPINEPHRINE [Concomitant]
     Active Substance: EPINEPHRINE
     Indication: Product used for unknown indication
  4. XANAX [Concomitant]
     Active Substance: ALPRAZOLAM
     Indication: Product used for unknown indication
  5. ALPHA LIPOIC ACID [Concomitant]
     Active Substance: .ALPHA.-LIPOIC ACID
     Indication: Product used for unknown indication
  6. OMEPRAZOLE [Concomitant]
     Active Substance: OMEPRAZOLE
  7. HYDROCHLOROTHIAZIDE [Concomitant]
     Active Substance: HYDROCHLOROTHIAZIDE
     Indication: Product used for unknown indication
  8. TIZANIDINE HYDROCHLORIDE [Concomitant]
     Active Substance: TIZANIDINE HYDROCHLORIDE
  9. FOLIC ACID [Concomitant]
     Active Substance: FOLIC ACID
  10. CLONAZEPAM [Concomitant]
     Active Substance: CLONAZEPAM
     Indication: Product used for unknown indication
  11. HYDROXYCHLOROQUINE SULFATE [Concomitant]
     Active Substance: HYDROXYCHLOROQUINE SULFATE
  12. CHROMIUM [Concomitant]
     Active Substance: CHROMIC CHLORIDE\CHROMIUM
  13. LIDOCAINE AND PRILOCAINE [Concomitant]
     Active Substance: LIDOCAINE\PRILOCAINE
     Indication: Product used for unknown indication
  14. CARISOPRODOL [Concomitant]
     Active Substance: CARISOPRODOL
     Indication: Product used for unknown indication
  15. DIPHENHYDRAMINE HYDROCHLORIDE [Concomitant]
     Active Substance: DIPHENHYDRAMINE HYDROCHLORIDE
  16. AZITHROMYCIN [Concomitant]
     Active Substance: AZITHROMYCIN
  17. BENZONATATE [Concomitant]
     Active Substance: BENZONATATE
  18. HYDROCHLOROTHIAZIDE\TELMISARTAN [Concomitant]
     Active Substance: HYDROCHLOROTHIAZIDE\TELMISARTAN
  19. VITAMIN B COMPLEX [Concomitant]
     Active Substance: CYANOCOBALAMIN\DEXPANTHENOL\NIACINAMIDE\PYRIDOXINE HYDROCHLORIDE\RIBOFLAVIN 5^-PHOSPHATE SODIUM\THIA
  20. ASPIRIN [Concomitant]
     Active Substance: ASPIRIN
  21. ALPRAZOLAM [Concomitant]
     Active Substance: ALPRAZOLAM
  22. BUPROPION HYDROCHLORIDE [Concomitant]
     Active Substance: BUPROPION HYDROCHLORIDE
     Indication: Product used for unknown indication
  23. GLUTATHIONE [Concomitant]
     Active Substance: GLUTATHIONE
     Indication: Product used for unknown indication
  24. TRAMADOL HCL [Concomitant]
     Active Substance: TRAMADOL HYDROCHLORIDE
     Indication: Product used for unknown indication
  25. Echinacea Herb [Concomitant]
  26. Adrecort [Concomitant]
  27. B12 [Concomitant]
  28. DIPHENHYDRAMINE [Concomitant]
     Active Substance: DIPHENHYDRAMINE
     Indication: Product used for unknown indication
  29. PROBIOTICS NOS [Concomitant]
     Active Substance: PROBIOTICS NOS
  30. NeuroActives BrainSustain [Concomitant]
  31. MELATONIN [Concomitant]
     Active Substance: MELATONIN
  32. TRAZODONE HCL [Concomitant]
     Active Substance: TRAZODONE HYDROCHLORIDE
  33. OXYBUTYNIN CHLORIDE [Concomitant]
     Active Substance: OXYBUTYNIN CHLORIDE

REACTIONS (34)
  - Sepsis [Unknown]
  - Arrhythmia [Recovered/Resolved]
  - Seasonal allergy [Unknown]
  - Food poisoning [Unknown]
  - Dysuria [Unknown]
  - Weight increased [Unknown]
  - Fluid retention [Unknown]
  - Drug hypersensitivity [Unknown]
  - Fungal infection [Unknown]
  - Post-acute COVID-19 syndrome [Recovering/Resolving]
  - Productive cough [Unknown]
  - Peripheral swelling [Unknown]
  - COVID-19 [Recovering/Resolving]
  - Fall [Unknown]
  - Tooth infection [Unknown]
  - Head injury [Unknown]
  - Eye discharge [Unknown]
  - Nasopharyngitis [Unknown]
  - Exposure to fungus [Unknown]
  - Product dose omission issue [Unknown]
  - Bronchitis [Unknown]
  - Obstruction [Not Recovered/Not Resolved]
  - Urinary tract infection [Unknown]
  - Visual impairment [Unknown]
  - Palpitations [Unknown]
  - Infusion site oedema [Recovering/Resolving]
  - Pain [Recovering/Resolving]
  - Muscular weakness [Unknown]
  - Back pain [Unknown]
  - Hypersensitivity [Unknown]
  - Fatigue [Recovered/Resolved]
  - Pruritus [Unknown]
  - Myalgia [Unknown]
  - Headache [Unknown]
